FAERS Safety Report 18681266 (Version 2)
Quarter: 2021Q3

REPORT INFORMATION
  Report Type: Spontaneous
  Country: US (occurrence: US)
  Receive Date: 20201229
  Receipt Date: 20210826
  Transmission Date: 20211014
  Serious: Yes (Other)
  Sender: FDA-Public Use
  Company Number: US-PURDUE-USA-2020-0192346

PATIENT
  Age: 3 Year
  Sex: Male

DRUGS (1)
  1. OXYCONTIN [Suspect]
     Active Substance: OXYCODONE HYDROCHLORIDE
     Indication: PRODUCT USED FOR UNKNOWN INDICATION
     Dosage: UNKNOWN
     Route: 064

REACTIONS (12)
  - Attention deficit hyperactivity disorder [Unknown]
  - Mental disorder [Unknown]
  - Injury [Unknown]
  - Drug withdrawal syndrome neonatal [Unknown]
  - Visual impairment [Unknown]
  - Foetal exposure during pregnancy [Unknown]
  - Suicidal ideation [Unknown]
  - Drug dependence [Unknown]
  - Behaviour disorder [Unknown]
  - Emotional disorder [Unknown]
  - Learning disorder [Unknown]
  - Tremor [Unknown]
